FAERS Safety Report 8273599-5 (Version None)
Quarter: 2012Q2

REPORT INFORMATION
  Report Type: 
  Country: None (occurrence: None)
  Receive Date: 20120411
  Receipt Date: 20120130
  Transmission Date: 20120825
  Serious: No
  Sender: FDA-Public Use
  Company Number: US-TEVA-319950USA

PATIENT
  Sex: Male
  Weight: 96.248 kg

DRUGS (3)
  1. NUVIGIL [Suspect]
     Indication: SLEEP APNOEA SYNDROME
     Dosage: 125 MG (1/2 TAB)
     Route: 048
     Dates: start: 20120122, end: 20120125
  2. MULTI-VITAMINS [Concomitant]
     Indication: VITAMIN SUPPLEMENTATION
     Route: 048
  3. COZAAR [Concomitant]
     Indication: HYPERTENSION
     Route: 048

REACTIONS (5)
  - TREMOR [None]
  - PSYCHOMOTOR HYPERACTIVITY [None]
  - SKIN DISCOLOURATION [None]
  - MEDICATION ERROR [None]
  - INSOMNIA [None]
